FAERS Safety Report 19737717 (Version 1)
Quarter: 2021Q3

REPORT INFORMATION
  Report Type: Spontaneous
  Country: US (occurrence: US)
  Receive Date: 20210824
  Receipt Date: 20210824
  Transmission Date: 20211014
  Serious: No
  Sender: FDA-Public Use
  Company Number: US-CADILA HEALTHCARE LIMITED-US-ZYDUS-067360

PATIENT

DRUGS (1)
  1. OXYBUTYNIN CHLORIDE 10 MILLIGRAM TABLET, EXTENDED RELEASE [Suspect]
     Active Substance: OXYBUTYNIN CHLORIDE
     Indication: BLADDER DISCOMFORT
     Dosage: 10 MILLIGRAM, QD
     Route: 048
     Dates: start: 20210505, end: 202106

REACTIONS (3)
  - Myalgia [Recovered/Resolved]
  - Gait disturbance [Recovered/Resolved]
  - Arthralgia [Recovered/Resolved]

NARRATIVE: CASE EVENT DATE: 202105
